FAERS Safety Report 5718610-8 (Version None)
Quarter: 2008Q2

REPORT INFORMATION
  Report Type: 
  Country: None (occurrence: None)
  Receive Date: 20080425
  Receipt Date: 20080415
  Transmission Date: 20081010
  Serious: No
  Sender: FDA-Public Use
  Company Number: US-PFIZER INC-2008021110

PATIENT
  Age: 62 Year
  Sex: Female

DRUGS (19)
  1. LYRICA [Suspect]
     Indication: FIBROMYALGIA
     Dosage: DAILY DOSE:450MG
  2. LYRICA [Suspect]
     Indication: PAIN
  3. METFORMIN HCL [Concomitant]
  4. COUMADIN [Concomitant]
  5. ALBUTEROL [Concomitant]
  6. NEXIUM [Concomitant]
  7. CRESTOR [Concomitant]
  8. MONTELUKAST SODIUM [Concomitant]
  9. ZYRTEC [Concomitant]
  10. EFFEXOR [Concomitant]
  11. LASIX [Concomitant]
  12. FISH OIL [Concomitant]
  13. VITAMIN CAP [Concomitant]
  14. TRIAZOLAM [Concomitant]
  15. SOMA [Concomitant]
  16. FLEXERIL [Concomitant]
  17. HYDROCODONE BITARTRATE [Concomitant]
  18. OXYBUTYNIN CHLORIDE [Concomitant]
  19. CRESTOR [Concomitant]

REACTIONS (1)
  - DYSPHEMIA [None]
